FAERS Safety Report 9603721 (Version 3)
Quarter: 2013Q4

REPORT INFORMATION
  Report Type: Spontaneous
  Country: US (occurrence: US)
  Receive Date: 20131007
  Receipt Date: 20131107
  Transmission Date: 20140711
  Serious: Yes (Death)
  Sender: FDA-Public Use
  Company Number: US-ROCHE-1284931

PATIENT
  Age: 43 Year
  Sex: Female

DRUGS (5)
  1. KADCYLA [Suspect]
     Indication: HER-2 POSITIVE BREAST CANCER
     Route: 065
  2. OXYCONTIN [Concomitant]
     Indication: PAIN
  3. DILAUDID [Concomitant]
     Indication: PAIN
  4. PREDNISONE [Concomitant]
     Indication: PAIN
  5. XANAX [Concomitant]
     Indication: PAIN

REACTIONS (5)
  - Disease progression [Fatal]
  - Hemiparesis [Unknown]
  - Headache [Unknown]
  - Pain [Unknown]
  - VIIth nerve paralysis [Unknown]
